FAERS Safety Report 8695942 (Version 3)
Quarter: 2013Q1

REPORT INFORMATION
  Report Type: Spontaneous
  Country: US (occurrence: US)
  Receive Date: 20120801
  Receipt Date: 20130301
  Transmission Date: 20140127
  Serious: Yes (Hospitalization)
  Sender: FDA-Public Use
  Company Number: US-BIOGENIDEC-2012BI027199

PATIENT
  Age: 36 Year
  Sex: Female

DRUGS (22)
  1. TYSABRI [Suspect]
     Indication: MULTIPLE SCLEROSIS
     Route: 042
     Dates: start: 20070712, end: 201205
  2. TYSABRI [Suspect]
     Indication: MULTIPLE SCLEROSIS
     Route: 042
     Dates: start: 201207
  3. MIDODRINE [Concomitant]
  4. ALBUTEROL [Concomitant]
     Indication: DYSPNOEA
     Route: 055
  5. ALBUTEROL [Concomitant]
     Indication: WHEEZING
     Route: 055
  6. BISACODYL [Concomitant]
     Route: 054
  7. DOCUSATE [Concomitant]
  8. FAMOTIDINE [Concomitant]
     Indication: PROPHYLAXIS
  9. MIRALAX [Concomitant]
  10. SENNA [Concomitant]
  11. SIMETHICONE [Concomitant]
     Indication: ABDOMINAL DISTENSION
  12. ENOXAPARIN [Concomitant]
     Indication: THROMBOSIS PROPHYLAXIS
     Route: 058
  13. GABAPENTIN [Concomitant]
  14. NORTRIPTYLINE [Concomitant]
  15. TRAZODONE [Concomitant]
     Indication: INSOMNIA
  16. ACETAMINOPHEN [Concomitant]
     Indication: PAIN
  17. ACETAMINOPHEN [Concomitant]
     Indication: HEADACHE
  18. ACETAMINOPHEN [Concomitant]
     Indication: PYREXIA
  19. CHOLECALCIFEROL [Concomitant]
  20. MAGNESIUM OXIDE [Concomitant]
  21. BACLOFEN [Concomitant]
  22. CHLORHEXIDINE [Concomitant]

REACTIONS (12)
  - Pneumonia [Unknown]
  - Upper respiratory tract infection [Unknown]
  - Multiple sclerosis relapse [Unknown]
  - Neuralgia [Unknown]
  - Urinary tract infection [Unknown]
  - Hypovolaemia [Recovered/Resolved]
  - Decubitus ulcer [Not Recovered/Not Resolved]
  - Hypothyroidism [Unknown]
  - Anaemia [Unknown]
  - Oral candidiasis [Unknown]
  - Vascular pseudoaneurysm [Unknown]
  - Guillain-Barre syndrome [Not Recovered/Not Resolved]
